FAERS Safety Report 10064739 (Version 1)
Quarter: 2014Q2

REPORT INFORMATION
  Report Type: Spontaneous
  Country: US (occurrence: US)
  Receive Date: 20140408
  Receipt Date: 20140408
  Transmission Date: 20141212
  Serious: Yes (Hospitalization)
  Sender: FDA-Public Use
  Company Number: US-BANPHARM-20142493

PATIENT
  Age: 2 Year
  Sex: Male
  Weight: 12 kg

DRUGS (1)
  1. IBUPROFEN UNKNOWN PRODUCT [Suspect]
     Indication: ACCIDENTAL EXPOSURE TO PRODUCT BY CHILD
     Route: 048

REACTIONS (12)
  - Haematemesis [Recovered/Resolved]
  - Haematochezia [Recovered/Resolved]
  - Gastroenteritis [Recovered/Resolved]
  - Vomiting [Recovered/Resolved]
  - Hypophagia [Recovering/Resolving]
  - Aphagia [Recovered/Resolved with Sequelae]
  - Weight decreased [Recovered/Resolved]
  - Gastric dilatation [Unknown]
  - Pyloric stenosis [Recovered/Resolved with Sequelae]
  - Gastrointestinal oedema [Unknown]
  - Gastric mucosa erythema [Unknown]
  - Pyloric stenosis [Recovered/Resolved with Sequelae]
